FAERS Safety Report 24841178 (Version 1)
Quarter: 2025Q1

REPORT INFORMATION
  Report Type: Spontaneous
  Country: US (occurrence: None)
  Receive Date: 20250114
  Receipt Date: 20250114
  Transmission Date: 20250408
  Serious: Yes (Disabling)
  Sender: FDA-CTU
  Company Number: None

PATIENT
  Age: 43 Year
  Sex: Female
  Weight: 126 kg

DRUGS (5)
  1. MOUNJARO [Suspect]
     Active Substance: TIRZEPATIDE
     Indication: Diabetes mellitus
     Dosage: OTHER QUANTITY : 1 INJECTION(S);?OTHER FREQUENCY : ONCE A WEEK;?
     Route: 058
     Dates: start: 20240624, end: 20240826
  2. 120 mg NP-thyroid [Concomitant]
  3. 10 mg Cytomel [Concomitant]
  4. Vitamin B, [Concomitant]
  5. VITAMIN D [Concomitant]
     Active Substance: VITAMIN D NOS

REACTIONS (7)
  - Anxiety [None]
  - Chest discomfort [None]
  - Palpitations [None]
  - Psychomotor hyperactivity [None]
  - Crying [None]
  - Palpitations [None]
  - Therapy cessation [None]

NARRATIVE: CASE EVENT DATE: 20240729
